FAERS Safety Report 9880871 (Version 1)
Quarter: 2014Q1

REPORT INFORMATION
  Report Type: Spontaneous
  Country: US (occurrence: US)
  Receive Date: 20140207
  Receipt Date: 20140207
  Transmission Date: 20141002
  Serious: No
  Sender: FDA-Public Use
  Company Number: US-PFIZER INC-2014035667

PATIENT
  Age: 62 Year
  Sex: Male
  Weight: 86.17 kg

DRUGS (1)
  1. LYRICA [Suspect]
     Indication: SARCOIDOSIS
     Dosage: 225 MG, 2X/DAY
     Dates: start: 2008

REACTIONS (1)
  - Vision blurred [Not Recovered/Not Resolved]
